FAERS Safety Report 8479656-2 (Version None)
Quarter: 2012Q2

REPORT INFORMATION
  Report Type: 
  Country: None (occurrence: None)
  Receive Date: 20120629
  Receipt Date: 20120618
  Transmission Date: 20120825
  Serious: Yes (Other)
  Sender: FDA-Public Use
  Company Number: JP-VERTEX PHARMACEUTICALS INC.-AE-2012-008853

PATIENT
  Age: 60 Year
  Sex: Male

DRUGS (6)
  1. REBETOL [Concomitant]
     Indication: HEPATITIS C
     Route: 048
     Dates: start: 20120605
  2. URSO 250 [Concomitant]
     Route: 048
  3. PEG-INTRON [Concomitant]
     Indication: HEPATITIS C
     Dates: start: 20120605
  4. NORVASC [Concomitant]
     Route: 048
  5. TELAVIC (TELAPREVIR) [Suspect]
     Indication: HEPATITIS C
     Route: 048
     Dates: start: 20120605
  6. NIZATIDINE [Concomitant]
     Route: 048

REACTIONS (3)
  - RASH [None]
  - HYPERURICAEMIA [None]
  - RENAL IMPAIRMENT [None]
